FAERS Safety Report 4384023-7 (Version None)
Quarter: 2004Q2

REPORT INFORMATION
  Report Type: 
  Country: None (occurrence: None)
  Receive Date: 20040621
  Receipt Date: 20040513
  Transmission Date: 20050107
  Serious: Yes (Hospitalization)
  Sender: FDA-Public Use
  Company Number: DSA_24392_2004

PATIENT
  Age: 60 Year
  Sex: Female

DRUGS (8)
  1. LORAZEPAM [Suspect]
     Dates: start: 20040510, end: 20040510
  2. AKINETON [Suspect]
     Dates: start: 20040510, end: 20040510
  3. ATOSIL [Suspect]
     Dates: start: 20040510, end: 20040510
  4. DOMINAL ^ASTA^ [Suspect]
     Dates: start: 20040510, end: 20040510
  5. REMERGIL [Suspect]
     Dates: start: 20040510, end: 20040510
  6. RISPERDAL [Suspect]
     Dates: start: 20040510, end: 20040510
  7. ZOPICLONE [Suspect]
     Dates: start: 20040510, end: 20040510
  8. FLUNITRAZEPAM [Suspect]
     Dates: start: 20040510, end: 20040510

REACTIONS (4)
  - COMA [None]
  - MULTIPLE DRUG OVERDOSE INTENTIONAL [None]
  - SOMNOLENCE [None]
  - WHITE BLOOD CELL COUNT INCREASED [None]
